FAERS Safety Report 16674082 (Version 1)
Quarter: 2019Q3

REPORT INFORMATION
  Report Type: Spontaneous
  Country: US (occurrence: US)
  Receive Date: 20190806
  Receipt Date: 20190806
  Transmission Date: 20191004
  Serious: Yes (Hospitalization, Other)
  Sender: FDA-Public Use
  Company Number: US-OTSUKA-2019_028381

PATIENT
  Age: 3 Year
  Sex: Male

DRUGS (1)
  1. ABILIFY [Suspect]
     Active Substance: ARIPIPRAZOLE
     Indication: PRODUCT USED FOR UNKNOWN INDICATION
     Dosage: 200 MG (15 MG/KG), UNK
     Route: 065

REACTIONS (11)
  - Tremor [Unknown]
  - Somnolence [Unknown]
  - Blood pressure decreased [Recovering/Resolving]
  - Hypokalaemia [Recovering/Resolving]
  - Slow speech [Unknown]
  - Lethargy [Unknown]
  - Trismus [Unknown]
  - Accidental overdose [Unknown]
  - Bradycardia [Recovering/Resolving]
  - Muscle twitching [Unknown]
  - Toxicity to various agents [Unknown]
